FAERS Safety Report 16829606 (Version 1)
Quarter: 2019Q3

REPORT INFORMATION
  Report Type: Spontaneous
  Country: JP (occurrence: JP)
  Receive Date: 20190919
  Receipt Date: 20190919
  Transmission Date: 20191005
  Serious: Yes (Other)
  Sender: FDA-Public Use
  Company Number: JP-GLAXOSMITHKLINE-JP2019JPN163966

PATIENT
  Age: 32 Year
  Sex: Male

DRUGS (3)
  1. EPZICOM [Suspect]
     Active Substance: ABACAVIR SULFATE\LAMIVUDINE
     Indication: HIV INFECTION
     Dosage: UNK
     Route: 048
  2. RITONAVIR. [Concomitant]
     Active Substance: RITONAVIR
     Indication: HIV INFECTION
     Dosage: UNK
  3. DARUNAVIR ETHANOLATE. [Concomitant]
     Active Substance: DARUNAVIR ETHANOLATE
     Indication: HIV INFECTION
     Dosage: UNK

REACTIONS (11)
  - Thrombocytopenia [Unknown]
  - Febrile neutropenia [Unknown]
  - Cardiothoracic ratio increased [Unknown]
  - Prothrombin time prolonged [Unknown]
  - Pneumonia bacterial [Recovering/Resolving]
  - C-reactive protein increased [Unknown]
  - Pyrexia [Unknown]
  - Acute promyelocytic leukaemia [Recovering/Resolving]
  - Differentiation syndrome [Unknown]
  - Neutropenia [Unknown]
  - Pleural effusion [Unknown]
